FAERS Safety Report 23214885 (Version 3)
Quarter: 2023Q4

REPORT INFORMATION
  Report Type: Report from Study
  Country: US (occurrence: US)
  Receive Date: 20231122
  Receipt Date: 20231204
  Transmission Date: 20240110
  Serious: Yes (Other)
  Sender: FDA-Public Use
  Company Number: US-ABBVIE-5499429

PATIENT
  Sex: Female

DRUGS (1)
  1. SKYRIZI [Suspect]
     Active Substance: RISANKIZUMAB-RZAA
     Indication: Crohn^s disease
     Dosage: LAST ADMIN DATE WAS UNSPECIFIED DATE OF 2023
     Route: 058
     Dates: start: 20230420

REACTIONS (1)
  - Carcinoid tumour [Recovering/Resolving]

NARRATIVE: CASE EVENT DATE: 20230101
